FAERS Safety Report 8482461-4 (Version None)
Quarter: 2012Q3

REPORT INFORMATION
  Report Type: 
  Country: None (occurrence: None)
  Receive Date: 20120702
  Receipt Date: 20120625
  Transmission Date: 20120928
  Serious: Yes (Death)
  Sender: FDA-Public Use
  Company Number: JP-GLAXOSMITHKLINE-B0811485A

PATIENT
  Age: 3 Year
  Sex: Female

DRUGS (7)
  1. VINCRISTINE [Concomitant]
     Dosage: 1.5MGM2 PER DAY
     Route: 042
  2. CYCLOPHOSPHAMIDE [Concomitant]
     Dosage: 2400MGM2 PER DAY
     Route: 065
  3. CISPLATIN [Concomitant]
     Dosage: 100MGM2 PER DAY
     Route: 042
  4. PIRARUBICIN HYDROCHLORIDE [Concomitant]
     Dosage: 40MGM2 PER DAY
  5. ETOPOSIDE [Concomitant]
     Dosage: 800MGM2 PER DAY
     Route: 065
  6. ALKERAN [Suspect]
     Dosage: 200MGM2 PER DAY
     Route: 042
  7. CARBOPLATIN [Concomitant]
     Dosage: 1600MGM2 PER DAY
     Route: 042

REACTIONS (15)
  - PLATELET COUNT DECREASED [None]
  - HAEMOLYTIC URAEMIC SYNDROME [None]
  - PROTEINURIA [None]
  - HAEMATURIA [None]
  - FIBRIN D DIMER INCREASED [None]
  - PULMONARY ALVEOLAR HAEMORRHAGE [None]
  - CEREBRAL HAEMORRHAGE [None]
  - BRAIN HERNIATION [None]
  - WEIGHT INCREASED [None]
  - HAPTOGLOBIN DECREASED [None]
  - OEDEMA [None]
  - ASCITES [None]
  - HAEMOLYSIS [None]
  - BLOOD LACTATE DEHYDROGENASE INCREASED [None]
  - HYPERTENSION [None]
